FAERS Safety Report 25513442 (Version 1)
Quarter: 2025Q3

REPORT INFORMATION
  Report Type: Spontaneous
  Country: US (occurrence: US)
  Receive Date: 20250703
  Receipt Date: 20250703
  Transmission Date: 20251021
  Serious: No
  Sender: SANOFI AVENTIS
  Company Number: US-SA-2025SA186251

PATIENT
  Age: 8 Year
  Sex: Male

DRUGS (2)
  1. DUPIXENT [Suspect]
     Active Substance: DUPILUMAB
     Indication: Eosinophilic oesophagitis
     Dosage: 200MG QOW
     Route: 058
     Dates: start: 20250326, end: 202505
  2. BUDESONIDE [Concomitant]
     Active Substance: BUDESONIDE

REACTIONS (2)
  - Abdominal pain upper [Unknown]
  - Headache [Unknown]

NARRATIVE: CASE EVENT DATE: 20250101
